FAERS Safety Report 12320180 (Version 1)
Quarter: 2016Q2

REPORT INFORMATION
  Report Type: Spontaneous
  Country: US (occurrence: US)
  Receive Date: 20160430
  Receipt Date: 20160430
  Transmission Date: 20160815
  Serious: Yes (Hospitalization)
  Sender: FDA-Public Use
  Company Number: US-ASTRAZENECA-2016SE44941

PATIENT
  Sex: Male

DRUGS (2)
  1. SYMBICORT [Suspect]
     Active Substance: BUDESONIDE\FORMOTEROL FUMARATE DIHYDRATE
     Indication: DYSPNOEA
     Dosage: 160MCG/4.5MCG, TWO TIMES A DAY
     Route: 055
  2. SYMBICORT [Suspect]
     Active Substance: BUDESONIDE\FORMOTEROL FUMARATE DIHYDRATE
     Indication: DYSPNOEA
     Dosage: 160MCG/4.5MCG, TWO TIMES A DAY
     Route: 055

REACTIONS (9)
  - Gallbladder disorder [Unknown]
  - Fluid retention [Unknown]
  - Drug dose omission [Unknown]
  - Abdominal infection [Unknown]
  - Weight decreased [Unknown]
  - Malaise [Unknown]
  - Peripheral swelling [Unknown]
  - Product quality control issue [Unknown]
  - Body height decreased [Unknown]
